FAERS Safety Report 20422932 (Version 1)
Quarter: 2022Q1

REPORT INFORMATION
  Report Type: Spontaneous
  Country: US (occurrence: US)
  Receive Date: 20220203
  Receipt Date: 20220203
  Transmission Date: 20220424
  Serious: Yes (Other)
  Sender: FDA-Public Use
  Company Number: US-PFIZER INC-202200132328

PATIENT
  Age: 49 Year
  Sex: Female
  Weight: 66.22 kg

DRUGS (1)
  1. LIOTHYRONINE SODIUM [Suspect]
     Active Substance: LIOTHYRONINE SODIUM
     Indication: Hypothyroidism
     Dosage: 5 UG, 2X/DAY
     Dates: start: 202106

REACTIONS (4)
  - Hypothyroidism [Unknown]
  - Disease recurrence [Unknown]
  - Drug ineffective [Unknown]
  - Post-acute COVID-19 syndrome [Unknown]
